FAERS Safety Report 21272598 (Version 2)
Quarter: 2022Q3

REPORT INFORMATION
  Report Type: Spontaneous
  Country: ES (occurrence: ES)
  Receive Date: 20220830
  Receipt Date: 20220906
  Transmission Date: 20221027
  Serious: Yes (Other)
  Sender: FDA-Public Use
  Company Number: ES-BEH-2022148956

PATIENT
  Age: 14 Day
  Sex: Female

DRUGS (1)
  1. HUMAN IMMUNOGLOBULIN G [Suspect]
     Active Substance: HUMAN IMMUNOGLOBULIN G
     Indication: Isoimmune haemolytic disease
     Dosage: 1 G/KG OVER 6 HOURS
     Route: 042

REACTIONS (2)
  - Necrotising colitis [Recovered/Resolved]
  - Off label use [Recovered/Resolved]
